FAERS Safety Report 18755139 (Version 10)
Quarter: 2023Q2

REPORT INFORMATION
  Report Type: Report from Study
  Country: US (occurrence: US)
  Receive Date: 20210119
  Receipt Date: 20230523
  Transmission Date: 20230721
  Serious: Yes (Death, Life-Threatening, Hospitalization, Other)
  Sender: FDA-Public Use
  Company Number: NVSC2021US006754

PATIENT
  Age: 25 Year
  Sex: Female
  Weight: 63 kg

DRUGS (13)
  1. KYMRIAH [Suspect]
     Active Substance: TISAGENLECLEUCEL
     Indication: Acute lymphocytic leukaemia
     Dosage: UNK
     Route: 042
     Dates: start: 20171005, end: 20191005
  2. KYMRIAH [Suspect]
     Active Substance: TISAGENLECLEUCEL
     Dosage: UNK (REINFUSION)
     Route: 042
     Dates: start: 20191029, end: 20191029
  3. PEMBROLIZUMAB [Concomitant]
     Active Substance: PEMBROLIZUMAB
     Indication: Antiretroviral therapy
     Dosage: 200 MG, Q3W
     Route: 065
     Dates: start: 20191112
  4. PEMBROLIZUMAB [Concomitant]
     Active Substance: PEMBROLIZUMAB
     Dosage: 200 MG
     Route: 065
     Dates: start: 20191127
  5. ANCEF [Concomitant]
     Active Substance: CEFAZOLIN SODIUM
     Indication: Antibiotic prophylaxis
     Dosage: 200 MG, Q8H
     Route: 042
     Dates: start: 20221104
  6. HIZENTRA [Concomitant]
     Active Substance: HUMAN IMMUNOGLOBULIN G
     Indication: B-cell aplasia
     Dosage: UNK, QW (WEEKLY)
     Route: 058
     Dates: start: 20190404, end: 20220806
  7. PROMACTA [Concomitant]
     Active Substance: ELTROMBOPAG OLAMINE
     Indication: Thrombocytopenia
     Dosage: UNK, PRN
     Route: 065
     Dates: start: 20181010
  8. OXYCODONE [Concomitant]
     Active Substance: OXYCODONE
     Indication: Osteonecrosis
     Dosage: 10 MG, Q4H PRN
     Route: 048
  9. FILGRASTIM [Concomitant]
     Active Substance: FILGRASTIM
     Indication: Neutropenia
     Dosage: 480 UG, QD
     Route: 058
     Dates: start: 20220916
  10. TRAMADOL [Concomitant]
     Active Substance: TRAMADOL
     Indication: Osteonecrosis
     Dosage: 50 MG, PRN Q6H
     Route: 048
  11. CHOLECALCIFEROL [Concomitant]
     Active Substance: CHOLECALCIFEROL
     Indication: Supplementation therapy
     Dosage: 100 UG, QD
     Route: 048
     Dates: start: 20210326
  12. CYCLOBENZAPRINE [Concomitant]
     Active Substance: CYCLOBENZAPRINE
     Indication: Osteonecrosis
     Dosage: 5 MG, BID (ALSO PRN)
     Route: 048
  13. LEVAQUIN [Concomitant]
     Active Substance: LEVOFLOXACIN
     Indication: Antibiotic prophylaxis
     Dosage: 750 MG, QD
     Route: 048
     Dates: start: 20220818

REACTIONS (14)
  - Pneumothorax [Recovered/Resolved]
  - Cellulitis [Recovered/Resolved]
  - Staphylococcal bacteraemia [Recovered/Resolved]
  - Sepsis [Recovered/Resolved]
  - Pneumonia [Recovered/Resolved]
  - Pneumonia [Recovered/Resolved]
  - Febrile neutropenia [Recovered/Resolved]
  - Febrile neutropenia [Recovered/Resolved]
  - Febrile neutropenia [Recovered/Resolved]
  - Subdural haematoma [Recovered/Resolved]
  - Febrile neutropenia [Recovered/Resolved]
  - Osteonecrosis [Recovered/Resolved]
  - Multiple organ dysfunction syndrome [Fatal]
  - Pulmonary embolism [Recovered/Resolved]

NARRATIVE: CASE EVENT DATE: 20200918
